FAERS Safety Report 21872500 (Version 1)
Quarter: 2023Q1

REPORT INFORMATION
  Report Type: Spontaneous
  Country: US (occurrence: None)
  Receive Date: 20230114
  Receipt Date: 20230114
  Transmission Date: 20230418
  Serious: Yes (Hospitalization)
  Sender: FDA-Public Use
  Company Number: None

PATIENT
  Sex: Male
  Weight: 80 kg

DRUGS (3)
  1. CISPLATIN [Suspect]
     Active Substance: CISPLATIN
  2. IFOSFAMIDE [Concomitant]
  3. TAXOL [Concomitant]
     Active Substance: PACLITAXEL

REACTIONS (5)
  - Febrile neutropenia [None]
  - Diarrhoea [None]
  - Haemoglobin decreased [None]
  - Platelet count decreased [None]
  - C-reactive protein increased [None]

NARRATIVE: CASE EVENT DATE: 20200522
